FAERS Safety Report 9506957 (Version 1)
Quarter: 2013Q3

REPORT INFORMATION
  Report Type: Spontaneous
  Country: US (occurrence: US)
  Receive Date: 20130909
  Receipt Date: 20130909
  Transmission Date: 20140515
  Serious: No
  Sender: FDA-Public Use
  Company Number: US-BAYER-2013-099512

PATIENT
  Age: 55 Year
  Sex: Male

DRUGS (2)
  1. STAXYN (FDT/ODT) [Suspect]
     Indication: ERECTILE DYSFUNCTION
     Dosage: 10 MG, QD
     Route: 048
     Dates: start: 20130816
  2. LEVITRA [Suspect]
     Dosage: 20 MG, QD
     Route: 048

REACTIONS (2)
  - Drug ineffective [None]
  - Drug ineffective [None]
